FAERS Safety Report 10210154 (Version 1)
Quarter: 2014Q2

REPORT INFORMATION
  Report Type: Spontaneous
  Country: US (occurrence: US)
  Receive Date: 20140602
  Receipt Date: 20140602
  Transmission Date: 20141212
  Serious: No
  Sender: FDA-Public Use
  Company Number: US-009507513-1405USA008519

PATIENT
  Age: 63 Year
  Sex: Female
  Weight: 60.32 kg

DRUGS (2)
  1. MIRALAX [Suspect]
     Indication: CONSTIPATION
     Dosage: UNK, UNKNOWN
     Route: 048
     Dates: start: 20140503, end: 20140505
  2. MIRALAX [Suspect]
     Indication: INTESTINAL OBSTRUCTION

REACTIONS (1)
  - Expired product administered [Unknown]
